FAERS Safety Report 14804905 (Version 2)
Quarter: 2018Q2

REPORT INFORMATION
  Report Type: Report from Study
  Country: CA (occurrence: CA)
  Receive Date: 20180425
  Receipt Date: 20180611
  Transmission Date: 20180711
  Serious: Yes (Hospitalization)
  Sender: FDA-Public Use
  Company Number: CA-HLSUS-2018-CA-000630

PATIENT
  Age: 43 Year
  Sex: Female
  Weight: 108 kg

DRUGS (7)
  1. RAMIPRIL. [Concomitant]
     Active Substance: RAMIPRIL
     Dosage: 2.5 MG BID
     Route: 048
  2. LEVOTHYROXINE. [Concomitant]
     Active Substance: LEVOTHYROXINE
     Dosage: 100MG
     Route: 048
  3. TRAZODONE [Concomitant]
     Active Substance: TRAZODONE HYDROCHLORIDE
     Dosage: 100 MG AT BEDTIME
     Route: 048
  4. ROSUVASTATIN. [Concomitant]
     Active Substance: ROSUVASTATIN
     Dosage: 5 MG ONCE DAILY
     Route: 048
  5. METFORMIN [Concomitant]
     Active Substance: METFORMIN HYDROCHLORIDE
     Dosage: 1000 MG BID
     Route: 048
  6. GLICLAZIDE [Concomitant]
     Active Substance: GLICLAZIDE
     Dosage: 30 MG
     Route: 048
  7. CLOZARIL [Suspect]
     Active Substance: CLOZAPINE
     Dosage: 300 MG AT BEDTIME
     Route: 048
     Dates: start: 19960118

REACTIONS (13)
  - Malaise [Unknown]
  - Tremor [Unknown]
  - Blood sodium decreased [Unknown]
  - Gamma-glutamyltransferase increased [Unknown]
  - Hypophagia [Unknown]
  - Ataxia [Unknown]
  - Muscle twitching [Unknown]
  - Fall [Unknown]
  - Vomiting [Unknown]
  - Blood chloride decreased [Unknown]
  - Toxicity to various agents [Recovered/Resolved]
  - Nausea [Unknown]
  - Blood bicarbonate decreased [Unknown]

NARRATIVE: CASE EVENT DATE: 20180325
